FAERS Safety Report 7560046-1 (Version None)
Quarter: 2011Q2

REPORT INFORMATION
  Report Type: 
  Country: None (occurrence: None)
  Receive Date: 20110617
  Receipt Date: 20110617
  Transmission Date: 20111010
  Serious: Yes (Life-Threatening, Hospitalization)
  Sender: FDA-Public Use
  Company Number: None

PATIENT
  Age: 56 Year
  Sex: Female
  Weight: 90 kg

DRUGS (1)
  1. VISIPAQUE 320 [Suspect]
     Indication: ANGIOGRAM PERIPHERAL
     Dosage: 38 ML X1 IA
     Route: 013
     Dates: start: 20110613

REACTIONS (6)
  - NAUSEA [None]
  - VOMITING [None]
  - RASH GENERALISED [None]
  - RASH MACULAR [None]
  - PAIN IN EXTREMITY [None]
  - WHEEZING [None]
